FAERS Safety Report 10272611 (Version 1)
Quarter: 2014Q2

REPORT INFORMATION
  Report Type: Spontaneous
  Country: US (occurrence: None)
  Receive Date: 20140630
  Receipt Date: 20140630
  Transmission Date: 20141212
  Serious: Yes (Life-Threatening, Hospitalization)
  Sender: FDA-Public Use
  Company Number: None

PATIENT
  Age: 22 Year
  Sex: Female
  Weight: 74.84 kg

DRUGS (1)
  1. PROZAC [Suspect]
     Indication: ANXIETY

REACTIONS (3)
  - Suicide attempt [None]
  - Incoherent [None]
  - Mental impairment [None]
